FAERS Safety Report 10404199 (Version 1)
Quarter: 2014Q1

REPORT INFORMATION
  Report Type: Spontaneous
  Country: US (occurrence: None)
  Receive Date: 20131226
  Receipt Date: 20131226
  Transmission Date: 20141002
  Serious: Yes (Hospitalization)
  Sender: FDA-Public Use
  Company Number: PHEH2012US008715

PATIENT
  Age: 56 Year
  Sex: Female

DRUGS (4)
  1. DIOVAN (VALSARTAN) [Suspect]
     Indication: HYPERTENSION
  2. HYDROCHLOROTHIAZIDE (HYDROCHLOROTHIAZIDE) [Concomitant]
  3. NEXIUM (ESOMEPRAZOLE MAGNESIUM) [Concomitant]
  4. ZOCOR (SIMVASTAATIN) [Concomitant]

REACTIONS (4)
  - Blood pressure increased [None]
  - Malaise [None]
  - Asthenia [None]
  - Stress [None]
